FAERS Safety Report 8460192-4 (Version None)
Quarter: 2012Q2

REPORT INFORMATION
  Report Type: 
  Country: None (occurrence: None)
  Receive Date: 20120622
  Receipt Date: 20120613
  Transmission Date: 20120825
  Serious: Yes (Hospitalization)
  Sender: FDA-Public Use
  Company Number: US-ABBOTT-12P-163-0946025-00

PATIENT
  Sex: Female
  Weight: 70.37 kg

DRUGS (8)
  1. ZYRTEC [Concomitant]
     Indication: HYPERSENSITIVITY
  2. HYDROCHLOROQUINE [Concomitant]
     Indication: RHEUMATOID ARTHRITIS
  3. HUMIRA [Suspect]
     Indication: RHEUMATOID ARTHRITIS
     Route: 058
     Dates: start: 20101101
  4. MICARDIS [Concomitant]
     Indication: CARDIAC DISORDER
  5. RANITIDINE [Concomitant]
     Indication: GASTROOESOPHAGEAL REFLUX DISEASE
  6. ZOCOR [Concomitant]
     Indication: BLOOD CHOLESTEROL
  7. METOPROLOL [Concomitant]
     Indication: BLOOD PRESSURE
  8. SINGULAIR [Concomitant]
     Indication: HYPERSENSITIVITY

REACTIONS (6)
  - HEMIPARESIS [None]
  - VASCULAR RUPTURE [None]
  - ILL-DEFINED DISORDER [None]
  - CEREBROVASCULAR ACCIDENT [None]
  - INFLAMMATION [None]
  - HYPERAESTHESIA [None]
